FAERS Safety Report 25890441 (Version 1)
Quarter: 2025Q4

REPORT INFORMATION
  Report Type: Spontaneous
  Country: CA (occurrence: CA)
  Receive Date: 20251007
  Receipt Date: 20251007
  Transmission Date: 20260118
  Serious: Yes (Other)
  Sender: PFIZER
  Company Number: CA-PFIZER INC-202500196605

PATIENT
  Age: 57 Year
  Sex: Male
  Weight: 62 kg

DRUGS (3)
  1. IXIFI [Suspect]
     Active Substance: INFLIXIMAB-QBTX
     Indication: Colitis ulcerative
     Dosage: 500 MG EVERY 6 WEEKS
     Route: 042
     Dates: start: 20250714
  2. IXIFI [Suspect]
     Active Substance: INFLIXIMAB-QBTX
     Dosage: 500 MG EVERY 6 WEEKS
     Route: 042
     Dates: start: 20250822
  3. IXIFI [Suspect]
     Active Substance: INFLIXIMAB-QBTX
     Dosage: 500 MG AFTER 5 WEEKS AND 6 DAYS
     Route: 042
     Dates: start: 20251002

REACTIONS (1)
  - Bacterial bursitis [Recovered/Resolved]

NARRATIVE: CASE EVENT DATE: 20250824
